FAERS Safety Report 7505230-8 (Version None)
Quarter: 2011Q2

REPORT INFORMATION
  Report Type: 
  Country: None (occurrence: None)
  Receive Date: 20110526
  Receipt Date: 20110523
  Transmission Date: 20111010
  Serious: No
  Sender: FDA-Public Use
  Company Number: US-PFIZER INC-2011111586

PATIENT
  Sex: Female

DRUGS (4)
  1. LYRICA [Suspect]
     Indication: BACK DISORDER
     Dosage: 50 MG, 2X/DAY
     Route: 048
     Dates: start: 20110519
  2. METFORMIN [Concomitant]
     Indication: DIABETES MELLITUS
     Dosage: 2000 MG, 2X/DAY
  3. LYRICA [Suspect]
     Indication: SPINAL COLUMN STENOSIS
  4. NUCYNTA [Concomitant]
     Indication: PAIN
     Dosage: 50 MG, 2X/DAY
     Dates: start: 20110510

REACTIONS (1)
  - DIZZINESS [None]
